FAERS Safety Report 17053786 (Version 1)
Quarter: 2019Q4

REPORT INFORMATION
  Report Type: Spontaneous
  Country: SE (occurrence: SE)
  Receive Date: 20191120
  Receipt Date: 20191120
  Transmission Date: 20200122
  Serious: Yes (Hospitalization)
  Sender: FDA-Public Use
  Company Number: SE-MYLANLABS-2019M1110485

PATIENT
  Sex: Female

DRUGS (1)
  1. LERGIGAN (PROMETHAZINE HYDROCHLORIDE) [Suspect]
     Active Substance: PROMETHAZINE HYDROCHLORIDE
     Indication: PRODUCT USED FOR UNKNOWN INDICATION
     Dosage: ^KAN HA TAGIT 25 X 100 LERGIGAN^
     Route: 048
     Dates: start: 201903, end: 201903

REACTIONS (7)
  - Intentional self-injury [Unknown]
  - Mydriasis [Unknown]
  - Tachycardia [Unknown]
  - Urinary retention [Unknown]
  - Loss of consciousness [Unknown]
  - Pupillary reflex impaired [Unknown]
  - Intentional overdose [Unknown]

NARRATIVE: CASE EVENT DATE: 201903
